FAERS Safety Report 25141236 (Version 1)
Quarter: 2025Q1

REPORT INFORMATION
  Report Type: Spontaneous
  Country: GB (occurrence: GB)
  Receive Date: 20250331
  Receipt Date: 20250331
  Transmission Date: 20250409
  Serious: Yes (Other)
  Sender: PFIZER
  Company Number: None

PATIENT
  Sex: Female
  Weight: 98 kg

DRUGS (5)
  1. FLUCONAZOLE [Suspect]
     Active Substance: FLUCONAZOLE
     Indication: Vulvovaginal candidiasis
     Dates: start: 20250326
  2. DULOXETINE [Concomitant]
     Active Substance: DULOXETINE
  3. PROMETHAZINE [Concomitant]
     Active Substance: PROMETHAZINE HYDROCHLORIDE
  4. QUETIAPINE [Concomitant]
     Active Substance: QUETIAPINE
  5. LYMECYCLINE [Concomitant]
     Active Substance: LYMECYCLINE

REACTIONS (3)
  - Muscular weakness [Recovering/Resolving]
  - Gastrooesophageal reflux disease [Recovering/Resolving]
  - Fatigue [Recovering/Resolving]

NARRATIVE: CASE EVENT DATE: 20250327
